FAERS Safety Report 11867233 (Version 5)
Quarter: 2016Q2

REPORT INFORMATION
  Report Type: Spontaneous
  Country: US (occurrence: US)
  Receive Date: 20151224
  Receipt Date: 20160518
  Transmission Date: 20160815
  Serious: Yes (Other)
  Sender: FDA-Public Use
  Company Number: US-PFIZER INC-2015412660

PATIENT
  Age: 47 Year
  Sex: Male
  Weight: 81 kg

DRUGS (2)
  1. SUTENT [Suspect]
     Active Substance: SUNITINIB MALATE
     Indication: RENAL CELL CARCINOMA
     Dosage: 50 MG, CYCLIC (1 CAPS D1-D28 Q42 D)
     Route: 048
     Dates: start: 20141104
  2. SUTENT [Suspect]
     Active Substance: SUNITINIB MALATE
     Dosage: 50 MG, CYCLIC (DAYS 1-28 Q 42 DAYS)
     Route: 048
     Dates: start: 20141104

REACTIONS (7)
  - Pain in extremity [Unknown]
  - Thinking abnormal [Recovered/Resolved]
  - Memory impairment [Unknown]
  - Thyroid function test abnormal [Unknown]
  - Rash erythematous [Not Recovered/Not Resolved]
  - Back pain [Unknown]
  - Pruritus [Unknown]

NARRATIVE: CASE EVENT DATE: 201511
